FAERS Safety Report 5392915-5 (Version None)
Quarter: 2007Q3

REPORT INFORMATION
  Report Type: 
  Country: None (occurrence: None)
  Receive Date: 20070718
  Receipt Date: 20070710
  Transmission Date: 20080115
  Serious: Yes (Hospitalization)
  Sender: FDA-Public Use
  Company Number: 062-C5013-07051253

PATIENT
  Age: 69 Year
  Sex: Male
  Weight: 98 kg

DRUGS (5)
  1. CC-5013 (LENALIDOMIDE) (CAPSULES) [Suspect]
     Indication: MULTIPLE MYELOMA
     Dosage: 25 MG, D 1-21, ORAL
     Route: 048
     Dates: start: 20070514, end: 20070523
  2. DEXAMETHASONE TAB [Suspect]
     Indication: MULTIPLE MYELOMA
     Dosage: 40 MG, D 1-4, 9-12, 17-20,
     Dates: start: 20070514, end: 20070523
  3. CALCIUM (CALCIUM) [Suspect]
     Indication: HYPOCALCAEMIA
     Dosage: ORAL
     Route: 048
     Dates: start: 20070519
  4. POTASSIUM (POTASSIUM) [Concomitant]
  5. MAGNESIA (MAGNESIUM) [Concomitant]

REACTIONS (3)
  - MUSCLE SPASMS [None]
  - MYOCLONUS [None]
  - THYROID NEOPLASM [None]
